FAERS Safety Report 5622174-7 (Version None)
Quarter: 2008Q1

REPORT INFORMATION
  Report Type: 
  Country: None (occurrence: None)
  Receive Date: 20080211
  Receipt Date: 20080207
  Transmission Date: 20080703
  Serious: Yes (Life-Threatening)
  Sender: FDA-Public Use
  Company Number: HR-ASTRAZENECA-2008SE00726

PATIENT
  Age: 8061 Day
  Sex: Male
  Weight: 87 kg

DRUGS (4)
  1. SYMBICORT [Suspect]
     Indication: ASTHMA
     Dosage: 160/4.5 UG 1 INHALATION BID
     Route: 055
     Dates: start: 20071001, end: 20071002
  2. SERETIDE [Suspect]
     Indication: ASTHMA
     Dosage: 250 UG 1 INHALATION BID
     Route: 055
     Dates: start: 20080103, end: 20080104
  3. HELEX [Concomitant]
     Dosage: 1 TABLET TID
     Route: 048
     Dates: start: 20070605, end: 20071216
  4. VITAMIN B COMPLEX CAP [Concomitant]
     Dosage: 1 TABL BID
     Route: 048

REACTIONS (5)
  - CHEST DISCOMFORT [None]
  - DEREALISATION [None]
  - NERVOUSNESS [None]
  - PALPITATIONS [None]
  - RESTLESSNESS [None]
